FAERS Safety Report 4330221-8 (Version None)
Quarter: 2004Q1

REPORT INFORMATION
  Report Type: 
  Country: None (occurrence: None)
  Receive Date: 20040329
  Receipt Date: 20040316
  Transmission Date: 20041129
  Serious: Yes (Hospitalization)
  Sender: FDA-Public Use
  Company Number: 04P-056-0254048-00

PATIENT
  Age: 79 Year
  Sex: Female
  Weight: 69 kg

DRUGS (3)
  1. ISOPTINE   (ISOPTIN)    (VERAPAMIL) [Suspect]
     Indication: TACHYCARDIA
     Dosage: 40 MG, 2 IN 1 D, PER ORAL
     Route: 048
     Dates: start: 20040114, end: 20040124
  2. MAGNESIUM + VITAMINS [Concomitant]
  3. SPASMINE [Concomitant]

REACTIONS (6)
  - ALANINE AMINOTRANSFERASE INCREASED [None]
  - ASPARTATE AMINOTRANSFERASE INCREASED [None]
  - EOSINOPHILIA [None]
  - PRURITUS [None]
  - PYREXIA [None]
  - RASH MORBILLIFORM [None]
